FAERS Safety Report 6083926-5 (Version None)
Quarter: 2009Q1

REPORT INFORMATION
  Report Type: 
  Country: None (occurrence: None)
  Receive Date: 20090219
  Receipt Date: 20090218
  Transmission Date: 20090719
  Serious: Yes (Hospitalization, Other)
  Sender: FDA-Public Use
  Company Number: A0769185A

PATIENT
  Age: 47 Year
  Sex: Female

DRUGS (4)
  1. NICOTINE [Suspect]
     Indication: SMOKING CESSATION THERAPY
     Dosage: 1PAT PER DAY
     Route: 062
     Dates: start: 20080101, end: 20080101
  2. TAGAMET [Suspect]
  3. XANAX [Concomitant]
  4. PERCOCET [Concomitant]

REACTIONS (4)
  - CERVICAL VERTEBRAL FRACTURE [None]
  - DRUG INEFFECTIVE [None]
  - PNEUMONIA [None]
  - SPINAL FRACTURE [None]
